FAERS Safety Report 6012589-X (Version None)
Quarter: 2008Q4

REPORT INFORMATION
  Report Type: 
  Country: None (occurrence: None)
  Receive Date: 20081217
  Receipt Date: 20081204
  Transmission Date: 20090506
  Serious: Yes (Other)
  Sender: FDA-Public Use
  Company Number: 2008EN000178

PATIENT
  Age: 14 Year
  Sex: Male

DRUGS (8)
  1. ABELCET [Suspect]
     Indication: DRUG USE FOR UNKNOWN INDICATION
     Dosage: 200 MG;QD; IV
     Route: 042
     Dates: start: 20081021, end: 20081021
  2. SACCHAROMYCES BOULARDII [Concomitant]
  3. CASPOFUNGIN [Concomitant]
  4. LINEZOLID [Concomitant]
  5. CLARITHROMYCIN [Concomitant]
  6. MEROPENEM [Concomitant]
  7. NEUPOGEN [Concomitant]
  8. BACTRIM [Concomitant]

REACTIONS (4)
  - CHILLS [None]
  - HYPOTENSION [None]
  - PERIPHERAL COLDNESS [None]
  - PYREXIA [None]
